FAERS Safety Report 24338750 (Version 1)
Quarter: 2024Q3

REPORT INFORMATION
  Report Type: Spontaneous
  Country: CN (occurrence: CN)
  Receive Date: 20240919
  Receipt Date: 20240919
  Transmission Date: 20241016
  Serious: Yes (Life-Threatening, Other)
  Sender: JIANGSU HANSOH PHARMACEUTICAL
  Company Number: CN-Jiangsu Hansoh Pharmaceutical Co., Ltd-2161807

PATIENT
  Age: 67 Year
  Sex: Female
  Weight: 66 kg

DRUGS (2)
  1. GEMCITABINE HYDROCHLORIDE [Suspect]
     Active Substance: GEMCITABINE HYDROCHLORIDE
     Indication: Pancreatic carcinoma recurrent
     Dates: start: 20240830, end: 20240830
  2. PACLITAXEL [Suspect]
     Active Substance: PACLITAXEL
     Dates: start: 20240830, end: 20240830

REACTIONS (5)
  - Myelosuppression [Unknown]
  - Somnolence [Unknown]
  - Decreased appetite [Unknown]
  - Renal failure [Unknown]
  - Hyperkalaemia [Unknown]

NARRATIVE: CASE EVENT DATE: 20240904
